FAERS Safety Report 25664957 (Version 1)
Quarter: 2025Q3

REPORT INFORMATION
  Report Type: Spontaneous
  Country: GB (occurrence: None)
  Receive Date: 20250809
  Receipt Date: 20250809
  Transmission Date: 20251020
  Serious: Yes (Other)
  Sender: FDA-CTU
  Company Number: None

PATIENT
  Age: 57 Year
  Sex: Female
  Weight: 63 kg

DRUGS (2)
  1. LEXAPRO [Suspect]
     Active Substance: ESCITALOPRAM OXALATE
     Indication: Depressed mood
     Dates: start: 20201015, end: 20210130
  2. HERBALS\TURMERIC [Concomitant]
     Active Substance: HERBALS\TURMERIC

REACTIONS (28)
  - Anxiety [None]
  - Akathisia [None]
  - Fear [None]
  - Sensory disturbance [None]
  - Agitation [None]
  - Retching [None]
  - Disturbance in sexual arousal [None]
  - Anhedonia [None]
  - Palpitations [None]
  - Dry mouth [None]
  - Hyperacusis [None]
  - Insomnia [None]
  - Panic reaction [None]
  - Decreased appetite [None]
  - Gastrointestinal disorder [None]
  - Drug withdrawal syndrome [None]
  - Suicidal ideation [None]
  - Persistent genital arousal disorder [None]
  - Muscular weakness [None]
  - Hypotonia [None]
  - Muscle spasms [None]
  - Sleep terror [None]
  - Visual impairment [None]
  - Balance disorder [None]
  - Coordination abnormal [None]
  - Apathy [None]
  - Weight decreased [None]
  - Decreased interest [None]

NARRATIVE: CASE EVENT DATE: 20210130
